FAERS Safety Report 4541165-0 (Version None)
Quarter: 2004Q4

REPORT INFORMATION
  Report Type: 
  Country: None (occurrence: None)
  Receive Date: 20041227
  Receipt Date: 20041221
  Transmission Date: 20050328
  Serious: Yes (Hospitalization)
  Sender: FDA-Public Use
  Company Number: HQWYE132321DEC04

PATIENT
  Age: 63 Year
  Sex: Female

DRUGS (2)
  1. RAPAMUNE [Suspect]
     Indication: PROPHYLAXIS AGAINST TRANSPLANT REJECTION
     Dosage: 5 MG 1X PER 1 DAY ORAL
     Route: 048
     Dates: start: 20041023
  2. CORTICOSTEROIDS (CORTICOSTEROIDS,) [Suspect]

REACTIONS (5)
  - CONDITION AGGRAVATED [None]
  - DIFFICULTY IN WALKING [None]
  - JOINT STIFFNESS [None]
  - JOINT SWELLING [None]
  - LOCALISED OSTEOARTHRITIS [None]
